FAERS Safety Report 16010057 (Version 1)
Quarter: 2019Q1

REPORT INFORMATION
  Report Type: Spontaneous
  Country: US (occurrence: US)
  Receive Date: 20190227
  Receipt Date: 20190227
  Transmission Date: 20190418
  Serious: Yes (Other)
  Sender: FDA-Public Use
  Company Number: US-009507513-1902USA009494

PATIENT
  Age: 55 Year
  Sex: Female

DRUGS (4)
  1. FOSAMAX [Suspect]
     Active Substance: ALENDRONATE SODIUM
     Indication: OSTEOPOROSIS
     Dosage: UNK
     Dates: start: 2005, end: 2012
  2. RECLAST [Suspect]
     Active Substance: ZOLEDRONIC ACID
     Dosage: UNK, 2/2
     Dates: end: 201412
  3. GLOBULIN, IMMUNE [Suspect]
     Active Substance: HUMAN IMMUNOGLOBULIN G
     Dosage: Q2 WKS
     Dates: start: 201104
  4. GLOBULIN, IMMUNE [Suspect]
     Active Substance: HUMAN IMMUNOGLOBULIN G
     Indication: LUNG DISORDER
     Dosage: UNK
     Dates: start: 201005

REACTIONS (6)
  - Femur fracture [Unknown]
  - Cataract [Unknown]
  - Hand fracture [Unknown]
  - Upper limb fracture [Recovered/Resolved]
  - Multiple fractures [Unknown]
  - Ulna fracture [Recovered/Resolved]

NARRATIVE: CASE EVENT DATE: 200711
